FAERS Safety Report 6822304-5 (Version None)
Quarter: 2010Q3

REPORT INFORMATION
  Report Type: 
  Country: None (occurrence: None)
  Receive Date: 20100707
  Receipt Date: 20100707
  Transmission Date: 20110219
  Serious: Yes (Disabling)
  Sender: FDA-Public Use
  Company Number: None

PATIENT
  Sex: Female
  Weight: 43.5453 kg

DRUGS (1)
  1. SINGULAIR [Suspect]
     Indication: ASTHMA
     Dosage: 5MG ONCE A DAY PO
     Route: 048
     Dates: start: 20091001, end: 20100501

REACTIONS (2)
  - HALLUCINATION, AUDITORY [None]
  - SUICIDAL IDEATION [None]
